FAERS Safety Report 11304800 (Version 2)
Quarter: 2015Q3

REPORT INFORMATION
  Report Type: Spontaneous
  Country: CN (occurrence: CN)
  Receive Date: 20150723
  Receipt Date: 20150915
  Transmission Date: 20151125
  Serious: Yes (Other)
  Sender: FDA-Public Use
  Company Number: CN-PFIZER INC-2015242238

PATIENT
  Age: 64 Year
  Sex: Male

DRUGS (8)
  1. CANCIDAS [Concomitant]
     Active Substance: CASPOFUNGIN ACETATE
     Indication: INFECTION
     Dosage: 50 MG, 1X/DAY
     Route: 041
     Dates: start: 20150114, end: 20150121
  2. TYGACIL [Suspect]
     Active Substance: TIGECYCLINE
     Dosage: 50 MG, 2X/DAY
     Route: 041
     Dates: start: 20150131, end: 20150209
  3. MEROPENEM. [Concomitant]
     Active Substance: MEROPENEM
     Indication: INFECTION
     Dosage: 2 G, 3X/DAY
     Route: 041
     Dates: start: 20150129, end: 20150209
  4. SULPERAZON [Concomitant]
     Active Substance: CEFOPERAZONE SODIUM\SULBACTAM SODIUM
     Indication: INFECTION
     Dosage: 3 G, 3X/DAY
     Route: 041
     Dates: start: 20150124, end: 20150129
  5. TYGACIL [Suspect]
     Active Substance: TIGECYCLINE
     Indication: INFECTION
     Dosage: 100 MG, 2X/DAY
     Route: 041
     Dates: start: 20150119
  6. TYGACIL [Suspect]
     Active Substance: TIGECYCLINE
     Dosage: 50 MG, 2X/DAY
     Route: 041
     Dates: start: 20150122, end: 20150128
  7. VANCOMYCIN [Suspect]
     Active Substance: VANCOMYCIN
     Indication: INFECTION
     Dosage: 0.5 G, 2X/DAY
     Route: 041
     Dates: start: 20150122, end: 20150209
  8. VFEND [Concomitant]
     Active Substance: VORICONAZOLE
     Indication: INFECTION
     Dosage: 200 MG, 2X/DAY
     Route: 041
     Dates: start: 20150121, end: 20150209

REACTIONS (1)
  - Renal impairment [Recovering/Resolving]

NARRATIVE: CASE EVENT DATE: 20150131
